FAERS Safety Report 16419495 (Version 1)
Quarter: 2019Q2

REPORT INFORMATION
  Report Type: Spontaneous
  Country: US (occurrence: US)
  Receive Date: 20190612
  Receipt Date: 20190612
  Transmission Date: 20190711
  Serious: No
  Sender: FDA-Public Use
  Company Number: US-AUROBINDO-AUR-APL-2018-060199

PATIENT

DRUGS (1)
  1. SUMATRIPTAN INJECTION USP 6 MG/0.5 ML [Suspect]
     Active Substance: SUMATRIPTAN
     Indication: PRODUCT USED FOR UNKNOWN INDICATION
     Dosage: UNK
     Route: 042

REACTIONS (3)
  - Incorrect route of product administration [Unknown]
  - Nausea [Recovered/Resolved]
  - Burning sensation [Recovered/Resolved]
